FAERS Safety Report 16338275 (Version 1)
Quarter: 2019Q2

REPORT INFORMATION
  Report Type: Spontaneous
  Country: US (occurrence: US)
  Receive Date: 20190521
  Receipt Date: 20190521
  Transmission Date: 20190711
  Serious: Yes (Other)
  Sender: FDA-Public Use
  Company Number: US-PFIZER INC-2019200719

PATIENT
  Age: 63 Year
  Sex: Female
  Weight: 106.59 kg

DRUGS (1)
  1. ROBITUSSIN DM [Suspect]
     Active Substance: DEXTROMETHORPHAN HYDROBROMIDE\GUAIFENESIN
     Indication: COUGH
     Dosage: UNK UNK, 1X/DAY (TOOK AS DIRECTED ONE TIME)
     Route: 048

REACTIONS (3)
  - Diarrhoea [Recovered/Resolved]
  - Haemorrhage [Recovered/Resolved]
  - Laryngitis [Unknown]
